FAERS Safety Report 25045013 (Version 1)
Quarter: 2025Q1

REPORT INFORMATION
  Report Type: Spontaneous
  Country: ES (occurrence: ES)
  Receive Date: 20250306
  Receipt Date: 20250306
  Transmission Date: 20250408
  Serious: Yes (Other)
  Sender: AVERITAS
  Company Number: ES-GRUNENTHAL-2025-101798

PATIENT
  Age: 5 Decade
  Sex: Female

DRUGS (2)
  1. QUTENZA [Suspect]
     Active Substance: CAPSAICIN
     Indication: Neuralgia
     Route: 003
     Dates: start: 20250122, end: 20250122
  2. QUTENZA [Suspect]
     Active Substance: CAPSAICIN
     Indication: Mastectomy

REACTIONS (3)
  - Application site discolouration [Unknown]
  - Pain [Unknown]
  - Application site exfoliation [Unknown]

NARRATIVE: CASE EVENT DATE: 20250123
